FAERS Safety Report 23297982 (Version 1)
Quarter: 2023Q4

REPORT INFORMATION
  Report Type: Spontaneous
  Country: US (occurrence: US)
  Receive Date: 20231214
  Receipt Date: 20231214
  Transmission Date: 20240110
  Serious: Yes (Other)
  Sender: FDA-Public Use
  Company Number: US-ELI_LILLY_AND_COMPANY-US202312003076

PATIENT
  Age: 59 Year
  Sex: Female

DRUGS (6)
  1. TRULICITY [Suspect]
     Active Substance: DULAGLUTIDE
     Indication: Type 2 diabetes mellitus
     Dosage: UNK UNK, WEEKLY (1/W)
     Route: 058
     Dates: start: 202302
  2. ZOFRAN [Concomitant]
     Active Substance: ONDANSETRON HYDROCHLORIDE
     Indication: Nausea
     Dosage: 4 MG, OTHER (EVERY 8 HOUR)
     Route: 065
  3. BUTALBITAL AND ACETAMINOPHEN [Concomitant]
     Active Substance: ACETAMINOPHEN\BUTALBITAL
     Indication: Pain
     Dosage: UNK UNK, OTHER (EVERY 4 HOUR AS NEEDED)
     Route: 065
  4. DICLOFENAC DIETHYLAMINE [Concomitant]
     Active Substance: DICLOFENAC DIETHYLAMINE
     Indication: Limb discomfort
  5. FAMOTIDINE [Concomitant]
     Active Substance: FAMOTIDINE
     Indication: Abdominal discomfort
     Dosage: 20 MG, OTHER (EVERY 12 HOUR)
     Route: 065
  6. LOSARTAN [Concomitant]
     Active Substance: LOSARTAN
     Indication: Hypertension
     Dosage: 50 MG, UNKNOWN
     Route: 065

REACTIONS (17)
  - Cerebrovascular accident [Unknown]
  - Hepatitis [Unknown]
  - Fluid intake reduced [Recovering/Resolving]
  - Eating disorder [Recovering/Resolving]
  - Dysuria [Recovering/Resolving]
  - Vitamin D abnormal [Unknown]
  - Liver disorder [Unknown]
  - Renal disorder [Unknown]
  - Eyelid ptosis [Unknown]
  - Balance disorder [Unknown]
  - Tension headache [Unknown]
  - Mobility decreased [Unknown]
  - Visual impairment [Unknown]
  - Pain [Unknown]
  - Weight decreased [Unknown]
  - Blood glucose decreased [Unknown]
  - Fatigue [Unknown]

NARRATIVE: CASE EVENT DATE: 20231129
